FAERS Safety Report 12312559 (Version 1)
Quarter: 2016Q2

REPORT INFORMATION
  Report Type: Spontaneous
  Country: US (occurrence: US)
  Receive Date: 20160428
  Receipt Date: 20160428
  Transmission Date: 20160815
  Serious: No
  Sender: FDA-Public Use
  Company Number: US-BIOGEN-2016BI00224324

PATIENT

DRUGS (3)
  1. TECFIDERA [Concomitant]
     Active Substance: DIMETHYL FUMARATE
  2. AVONEX [Suspect]
     Active Substance: INTERFERON BETA-1A
     Indication: MULTIPLE SCLEROSIS
  3. BETASERON [Concomitant]
     Active Substance: INTERFERON BETA-1B

REACTIONS (12)
  - Asthenia [Unknown]
  - Flushing [Unknown]
  - Hemiparesis [Unknown]
  - Bladder disorder [Unknown]
  - Temperature intolerance [Unknown]
  - Frustration tolerance decreased [Unknown]
  - Fatigue [Unknown]
  - Influenza like illness [Unknown]
  - Cognitive disorder [Unknown]
  - Blindness unilateral [Unknown]
  - Mood swings [Unknown]
  - Hemianaesthesia [Unknown]
